FAERS Safety Report 8382636 (Version 8)
Quarter: 2013Q4

REPORT INFORMATION
  Report Type: Spontaneous
  Country: US (occurrence: US)
  Receive Date: 20120201
  Receipt Date: 20131213
  Transmission Date: 20140711
  Serious: Yes (Other)
  Sender: FDA-Public Use
  Company Number: US-ROCHE-1035276

PATIENT
  Age: 38 Year
  Sex: Male
  Weight: 150.5 kg

DRUGS (1)
  1. ACCUTANE [Suspect]
     Indication: ACNE
     Route: 065

REACTIONS (8)
  - Inflammatory bowel disease [Unknown]
  - Anxiety [Unknown]
  - Colitis ulcerative [Unknown]
  - Haemorrhoids [Unknown]
  - Large intestine polyp [Unknown]
  - Suicidal ideation [Unknown]
  - Depression [Unknown]
  - Diverticulum intestinal [Unknown]
